FAERS Safety Report 4649700-9 (Version None)
Quarter: 2005Q2

REPORT INFORMATION
  Report Type: 
  Country: None (occurrence: None)
  Receive Date: 20050502
  Receipt Date: 20050404
  Transmission Date: 20051028
  Serious: Yes (Hospitalization)
  Sender: FDA-Public Use
  Company Number: GB-BOEHRINGER INGELHEIM PHARMACEUTICALS, INC.-2005-UK-00560UK

PATIENT
  Age: 74 Year
  Sex: Male

DRUGS (8)
  1. SPIRIVA [Suspect]
     Indication: CHRONIC OBSTRUCTIVE PULMONARY DISEASE
     Dosage: 2 CAPSULES DAILY
     Route: 055
  2. SPIRIVA [Suspect]
     Route: 055
     Dates: start: 20030101
  3. AMITRIPTYLINE HCL TAB [Concomitant]
     Dosage: 10 MG NOCTE
  4. CO-AMILOFRUSE [Concomitant]
     Indication: BLOOD PRESSURE
     Dosage: 5/40 ONE DAILY
     Route: 048
  5. WARFARIN SODIUM [Concomitant]
     Indication: ATRIAL FIBRILLATION
     Dosage: 1MG AND 3MG
     Route: 048
  6. DIGOXIN [Concomitant]
     Indication: ATRIAL FIBRILLATION
     Route: 048
  7. SERETIDE 125 EVOHALER [Concomitant]
     Indication: CHRONIC OBSTRUCTIVE PULMONARY DISEASE
     Dosage: 2 TWICE DAILY
     Route: 048
  8. PREDNISOLONE EC [Concomitant]
     Indication: CHRONIC OBSTRUCTIVE PULMONARY DISEASE
     Route: 048

REACTIONS (5)
  - ANEURYSM [None]
  - CONSTIPATION [None]
  - DRY MOUTH [None]
  - RENAL IMPAIRMENT [None]
  - URINARY RETENTION [None]
